FAERS Safety Report 14969053 (Version 1)
Quarter: 2018Q2

REPORT INFORMATION
  Report Type: Spontaneous
  Country: US (occurrence: US)
  Receive Date: 20180604
  Receipt Date: 20180604
  Transmission Date: 20180711
  Serious: No
  Sender: FDA-Public Use
  Company Number: US-SA-2018SA123105

PATIENT
  Age: 50 Year
  Sex: Female
  Weight: 65 kg

DRUGS (19)
  1. MYCOPHENOLIC ACID. [Concomitant]
     Active Substance: MYCOPHENOLIC ACID
     Dosage: 1 DF,QD
     Route: 048
     Dates: start: 20180421
  2. NITROFURANTOIN. [Concomitant]
     Active Substance: NITROFURANTOIN
     Dosage: 1 DF,UNK
     Route: 048
     Dates: start: 20180113
  3. BACLOFEN. [Concomitant]
     Active Substance: BACLOFEN
     Dosage: 1 DF,Q8H
     Route: 048
     Dates: start: 20160910
  4. VENTOLIN [SALBUTAMOL] [Concomitant]
     Dosage: 1 DF,QD
     Route: 055
     Dates: start: 20180412
  5. FLUBLOK [Concomitant]
     Active Substance: INFLUENZA A VIRUS A/CALIFORNIA/7/2009 (H1N1) RECOMBINANT HEMAGGLUTININ ANTIGEN\INFLUENZA A VIRUS A/VICTORIA/361/2011 (H3N2) RECOMBINANT HEMAGGLUTININ ANTIGEN\INFLUENZA B VIRUS B/WISCONSIN/1/2010 RECOMBINANT HEMAGGLUTININ ANTIGEN
     Dosage: 1 DF,1X
     Route: 030
     Dates: start: 20180129
  6. NORMAL SALINE [Concomitant]
     Active Substance: SODIUM CHLORIDE
     Dosage: .9 %,UNK
     Route: 042
     Dates: start: 20180113
  7. ESTROGEL [Concomitant]
     Active Substance: ESTRADIOL
     Dosage: 1.25 G,QD
     Route: 061
     Dates: start: 20180208
  8. TACROLIMUS. [Concomitant]
     Active Substance: TACROLIMUS
     Dosage: 2 DF,TID
     Route: 048
     Dates: start: 20170729
  9. MIRALAX [Concomitant]
     Active Substance: POLYETHYLENE GLYCOL 3350
     Dosage: 1 DF,QD
     Route: 048
     Dates: start: 20170718
  10. FABRAZYME [Suspect]
     Active Substance: AGALSIDASE BETA
     Dosage: 1 MG/KG,QOW
     Route: 041
  11. BISACODYL. [Concomitant]
     Active Substance: BISACODYL
     Dosage: 1 DF,QD
     Route: 054
     Dates: start: 20170222
  12. MAGNESIUM [Concomitant]
     Active Substance: MAGNESIUM
     Dosage: 1 DF,QD
     Route: 048
     Dates: start: 20160213
  13. FABRAZYME [Suspect]
     Active Substance: AGALSIDASE BETA
     Indication: FABRY^S DISEASE
     Dosage: 1 MG/KG,QOW
     Route: 041
  14. CULTURELLE [Concomitant]
     Active Substance: LACTOBACILLUS RHAMNOSUS
     Dosage: 1 DF,QD
     Route: 048
     Dates: start: 20170114
  15. LIDOCAINE/PRILOCAINE [Concomitant]
     Active Substance: LIDOCAINE\PRILOCAINE
     Dosage: 2.5 %,UNK
     Route: 065
     Dates: start: 20180113
  16. EPINEPHRINE. [Concomitant]
     Active Substance: EPINEPHRINE
     Dosage: .3 MG,UNK
     Route: 030
     Dates: start: 20180113
  17. HEPARIN [Concomitant]
     Active Substance: HEPARIN SODIUM
     Dosage: UNK UNK,UNK
     Route: 042
     Dates: start: 20180113
  18. PREDNISONE. [Concomitant]
     Active Substance: PREDNISONE
     Dosage: 2 DF,QD
     Route: 048
     Dates: start: 20180410
  19. AMOXICILLIN TRIHYDRATE;BENZYDAMINE HYDROCHLORIDE;BROMHEXINE HYDROCHLOR [Concomitant]
     Dosage: 1 DF,QD
     Route: 048
     Dates: start: 20161119

REACTIONS (1)
  - Blood creatine abnormal [Not Recovered/Not Resolved]

NARRATIVE: CASE EVENT DATE: 201804
